FAERS Safety Report 6005385-0 (Version None)
Quarter: 2008Q4

REPORT INFORMATION
  Report Type: 
  Country: None (occurrence: None)
  Receive Date: 20081216
  Receipt Date: 20081209
  Transmission Date: 20090506
  Serious: Yes (Other)
  Sender: FDA-Public Use
  Company Number: US-JNJCH-2008053301

PATIENT
  Sex: Male
  Weight: 90.7 kg

DRUGS (4)
  1. FRESH CITRUS LISTERINE POCKETPAKS [Suspect]
     Indication: BREATH ODOUR
     Dosage: TEXT:ONE STRIP ONE TIME
     Route: 048
     Dates: start: 20081009, end: 20081009
  2. NASAREL [Concomitant]
     Indication: SEASONAL ALLERGY
     Dosage: TEXT:UNSPECIFIED
     Route: 065
  3. LORATADINE [Concomitant]
     Indication: SEASONAL ALLERGY
     Dosage: TEXT:UNSPECIFIED
     Route: 065
  4. CETIRIZINE HCL [Concomitant]
     Indication: SEASONAL ALLERGY
     Dosage: TEXT:UNSPECIFIED
     Route: 065

REACTIONS (3)
  - ABDOMINAL PAIN [None]
  - ANAPHYLACTIC REACTION [None]
  - DIARRHOEA [None]
